FAERS Safety Report 21329501 (Version 1)
Quarter: 2022Q3

REPORT INFORMATION
  Report Type: Spontaneous
  Country: US (occurrence: None)
  Receive Date: 20220913
  Receipt Date: 20220913
  Transmission Date: 20221027
  Serious: Yes (Life-Threatening, Hospitalization)
  Sender: FDA-Public Use
  Company Number: None

PATIENT
  Age: 75 Year
  Sex: Male

DRUGS (2)
  1. APIXABAN [Suspect]
     Active Substance: APIXABAN
     Indication: Atrial fibrillation
     Dosage: FREQUENCY : TWICE A DAY;?
     Route: 048
     Dates: start: 20190927
  2. APIXABAN [Suspect]
     Active Substance: APIXABAN
     Dosage: FREQUENCY : DAILY;?
     Route: 048
     Dates: start: 20170329

REACTIONS (5)
  - Tooth extraction [None]
  - Post procedural haemorrhage [None]
  - Obstructive airways disorder [None]
  - Tooth socket haemorrhage [None]
  - Medical device site haemorrhage [None]

NARRATIVE: CASE EVENT DATE: 20220829
